FAERS Safety Report 15853812 (Version 5)
Quarter: 2019Q2

REPORT INFORMATION
  Report Type: Spontaneous
  Country: JP (occurrence: JP)
  Receive Date: 20190122
  Receipt Date: 20190620
  Transmission Date: 20190711
  Serious: Yes (Death, Hospitalization)
  Sender: FDA-Public Use
  Company Number: JP-PFIZER INC-2019025615

PATIENT
  Age: 77 Year
  Sex: Female

DRUGS (1)
  1. LORBRENA [Suspect]
     Active Substance: LORLATINIB
     Indication: LUNG NEOPLASM MALIGNANT
     Dosage: 100 MG, DAILY
     Route: 048
     Dates: start: 20181213, end: 20190221

REACTIONS (4)
  - Neoplasm progression [Fatal]
  - Femoral neck fracture [Not Recovered/Not Resolved]
  - Low density lipoprotein increased [Unknown]
  - Blood triglycerides increased [Unknown]

NARRATIVE: CASE EVENT DATE: 20190114
